FAERS Safety Report 7583939-8 (Version None)
Quarter: 2011Q2

REPORT INFORMATION
  Report Type: 
  Country: None (occurrence: None)
  Receive Date: 20110630
  Receipt Date: 20110617
  Transmission Date: 20111010
  Serious: Yes (Hospitalization, Other)
  Sender: FDA-Public Use
  Company Number: US-ELI_LILLY_AND_COMPANY-US201106006192

PATIENT
  Sex: Female

DRUGS (11)
  1. HUMULIN N [Suspect]
     Indication: TYPE 2 DIABETES MELLITUS
     Dosage: 155 U, BID
  2. ALPRAZOLAM [Concomitant]
     Dosage: 1 MG, UNK
  3. FUROSEMIDE [Concomitant]
     Dosage: 160 MG, BID
  4. METOLAZONE [Concomitant]
     Dosage: 2.5 MG, PRN
  5. LISINOPRIL [Concomitant]
     Dosage: 10 MG, QD
  6. CLONAZEPAM [Concomitant]
     Dosage: UNK UNK, EACH EVENING
  7. ASPIRIN [Concomitant]
     Dosage: UNK, QD
  8. HUMALOG [Suspect]
     Indication: TYPE 2 DIABETES MELLITUS
     Dosage: UNK UNK, PRN
  9. METOPROLOL TARTRATE [Concomitant]
     Dosage: 25 MG, BID
  10. CITALOPRAM HYDROBROMIDE [Concomitant]
     Dosage: 40 MG, QD
  11. SIMVASTATIN [Concomitant]
     Dosage: UNK

REACTIONS (13)
  - OEDEMA [None]
  - IMPAIRED HEALING [None]
  - BLOOD GLUCOSE INCREASED [None]
  - BLISTER [None]
  - CARDIAC FAILURE CONGESTIVE [None]
  - OSTEOMYELITIS [None]
  - DRUG DOSE OMISSION [None]
  - DYSPNOEA [None]
  - DIABETES MELLITUS INADEQUATE CONTROL [None]
  - WOUND [None]
  - ANXIETY [None]
  - PAIN IN EXTREMITY [None]
  - WEIGHT DECREASED [None]
